FAERS Safety Report 7033484-3 (Version None)
Quarter: 2010Q4

REPORT INFORMATION
  Report Type: 
  Country: None (occurrence: None)
  Receive Date: 20101007
  Receipt Date: 20101001
  Transmission Date: 20110411
  Serious: Yes (Hospitalization)
  Sender: FDA-Public Use
  Company Number: IT-BAYER-201041404GPV

PATIENT
  Age: 52 Year
  Sex: Female

DRUGS (11)
  1. ASPIRIN [Suspect]
     Indication: MYOCARDIAL INFARCTION
     Dosage: TOTAL DAILY DOSE: 100 MG
     Route: 048
     Dates: start: 20070601, end: 20100614
  2. BISOPROLOL SANDOZ [Suspect]
     Indication: MYOCARDIAL INFARCTION
     Route: 048
     Dates: start: 20100527, end: 20100614
  3. VOLTAREN [Suspect]
     Indication: ARTHRALGIA
     Dates: start: 20100510, end: 20100520
  4. CALCIUM CARBONATE + COLECALCIFEROL [Concomitant]
  5. EUTIROX [Concomitant]
  6. ESKIM [Concomitant]
  7. AUGMENTIN '125' [Concomitant]
     Indication: PHARYNGOTONSILLITIS
     Dates: start: 20100610, end: 20100614
  8. BENTELAN [Concomitant]
     Indication: LOCALISED OEDEMA
     Dates: start: 20100610
  9. PEPTAZOL [Concomitant]
  10. CRESTOR [Concomitant]
  11. MODURETIC 5-50 [Concomitant]

REACTIONS (1)
  - STEVENS-JOHNSON SYNDROME [None]
